FAERS Safety Report 17020678 (Version 2)
Quarter: 2019Q4

REPORT INFORMATION
  Report Type: Spontaneous
  Country: AU (occurrence: AU)
  Receive Date: 20191112
  Receipt Date: 20191126
  Transmission Date: 20200122
  Serious: Yes (Hospitalization)
  Sender: FDA-Public Use
  Company Number: AU-JNJFOC-20191047384

PATIENT
  Age: 52 Year
  Sex: Female

DRUGS (14)
  1. LORAZEPAM. [Suspect]
     Active Substance: LORAZEPAM
     Indication: PRODUCT USED FOR UNKNOWN INDICATION
     Route: 065
     Dates: start: 201406
  2. PERINDOPRIL [Concomitant]
     Active Substance: PERINDOPRIL
  3. ARIPIPRAZOLE. [Concomitant]
     Active Substance: ARIPIPRAZOLE
  4. FUROSEMIDE. [Concomitant]
     Active Substance: FUROSEMIDE
  5. LITHIUM. [Concomitant]
     Active Substance: LITHIUM
  6. OLANZAPINE. [Suspect]
     Active Substance: OLANZAPINE
     Indication: PRODUCT USED FOR UNKNOWN INDICATION
     Route: 065
  7. ASENAPINE. [Suspect]
     Active Substance: ASENAPINE
     Indication: PRODUCT USED FOR UNKNOWN INDICATION
     Route: 065
     Dates: start: 20140520
  8. INVEGA [Suspect]
     Active Substance: PALIPERIDONE
     Indication: SCHIZOPHRENIA
     Route: 048
  9. QUETIAPINE. [Suspect]
     Active Substance: QUETIAPINE
     Indication: PRODUCT USED FOR UNKNOWN INDICATION
     Route: 065
     Dates: start: 20140613
  10. CLOZARIL [Suspect]
     Active Substance: CLOZAPINE
     Route: 065
     Dates: end: 20140520
  11. CARVEDILOL. [Concomitant]
     Active Substance: CARVEDILOL
  12. SODIUM VALPROATE [Concomitant]
     Active Substance: VALPROATE SODIUM
  13. ASENAPINE. [Suspect]
     Active Substance: ASENAPINE
     Route: 065
     Dates: start: 20140530, end: 20140608
  14. SPIRONOLACTONE. [Concomitant]
     Active Substance: SPIRONOLACTONE

REACTIONS (29)
  - Myocarditis [Unknown]
  - Diarrhoea [Unknown]
  - Joint swelling [Unknown]
  - Congestive cardiomyopathy [Unknown]
  - QRS axis abnormal [Unknown]
  - Rhinorrhoea [Unknown]
  - Bundle branch block right [Unknown]
  - Vomiting [Unknown]
  - Drug ineffective [Unknown]
  - Delusion [Unknown]
  - Electrocardiogram QT prolonged [Unknown]
  - Atrial flutter [Unknown]
  - Left ventricular dysfunction [Recovered/Resolved]
  - Bundle branch block left [Unknown]
  - Nausea [Unknown]
  - Insomnia [Unknown]
  - Anxiety [Unknown]
  - Myocardial ischaemia [Unknown]
  - Electrocardiogram T wave inversion [Unknown]
  - Mental impairment [Unknown]
  - Weight decreased [Unknown]
  - Pollakiuria [Unknown]
  - Sedation [Unknown]
  - Sinus tachycardia [Unknown]
  - Constipation [Unknown]
  - Hallucination, auditory [Unknown]
  - Myocardial infarction [Unknown]
  - Electrocardiogram T wave abnormal [Unknown]
  - Salivary hypersecretion [Unknown]

NARRATIVE: CASE EVENT DATE: 2013
